FAERS Safety Report 7903386-6 (Version None)
Quarter: 2011Q4

REPORT INFORMATION
  Report Type: 
  Country: None (occurrence: None)
  Receive Date: 20111107
  Receipt Date: 20111024
  Transmission Date: 20120403
  Serious: Yes (Life-Threatening, Hospitalization, Other)
  Sender: FDA-Public Use
  Company Number: 2011P1009675

PATIENT
  Age: 30 Year
  Sex: Female

DRUGS (3)
  1. AMIODARONE HCL [Suspect]
     Indication: INTENTIONAL OVERDOSE
     Dosage: X1;PO
     Route: 048
  2. METOPROLOL (NO PREF. NAME) [Suspect]
     Indication: INTENTIONAL OVERDOSE
     Dosage: X1;PO
     Route: 048
  3. DILTIAZEM [Suspect]
     Indication: INTENTIONAL OVERDOSE
     Dosage: X1;PO
     Route: 048

REACTIONS (6)
  - BLOOD GLUCOSE INCREASED [None]
  - ANURIA [None]
  - CARDIOGENIC SHOCK [None]
  - INCORRECT DOSE ADMINISTERED [None]
  - CONFUSIONAL STATE [None]
  - EJECTION FRACTION DECREASED [None]
